FAERS Safety Report 21713579 (Version 2)
Quarter: 2022Q4

REPORT INFORMATION
  Report Type: Report from Study
  Country: FR (occurrence: None)
  Receive Date: 20221212
  Receipt Date: 20221213
  Transmission Date: 20230113
  Serious: Yes (Hospitalization)
  Sender: FDA-Public Use
  Company Number: FR-Merck Healthcare KGaA-9370721

PATIENT
  Age: 60 Year
  Sex: Female
  Weight: 35 kg

DRUGS (4)
  1. AVELUMAB [Suspect]
     Active Substance: AVELUMAB
     Indication: Carcinoid tumour of the gastrointestinal tract
     Dates: start: 20220614
  2. AVELUMAB [Suspect]
     Active Substance: AVELUMAB
     Dates: start: 20221115
  3. REGORAFENIB [Suspect]
     Active Substance: REGORAFENIB
     Indication: Carcinoid tumour of the gastrointestinal tract
     Route: 048
     Dates: start: 20220601
  4. REGORAFENIB [Suspect]
     Active Substance: REGORAFENIB
     Route: 048
     Dates: start: 20221129

REACTIONS (1)
  - Lung disorder [Not Recovered/Not Resolved]

NARRATIVE: CASE EVENT DATE: 20221129
